FAERS Safety Report 5757581-5 (Version None)
Quarter: 2008Q2

REPORT INFORMATION
  Report Type: 
  Country: None (occurrence: None)
  Receive Date: 20080603
  Receipt Date: 20080522
  Transmission Date: 20081010
  Serious: Yes (Other)
  Sender: FDA-Public Use
  Company Number: US-PFIZER INC-2008015337

PATIENT
  Sex: Male
  Weight: 88.5 kg

DRUGS (9)
  1. LYRICA [Suspect]
     Indication: RADICULAR PAIN
  2. LYRICA [Suspect]
     Indication: PAIN MANAGEMENT
  3. PROVIGIL [Concomitant]
     Dosage: DAILY DOSE:300MG
  4. ZOLOFT [Concomitant]
     Dosage: DAILY DOSE:250MG
  5. ALPRAZOLAM [Concomitant]
     Dosage: DAILY DOSE:.5MG
  6. ABILIFY [Concomitant]
     Dosage: DAILY DOSE:2.5MG
  7. METFORMIN HCL [Concomitant]
  8. MEDROL [Concomitant]
  9. ANAESTHETICS [Concomitant]

REACTIONS (4)
  - BURSA DISORDER [None]
  - DYSPHAGIA [None]
  - OBSESSIVE-COMPULSIVE DISORDER [None]
  - SPEECH DISORDER [None]
